FAERS Safety Report 9468059 (Version 2)
Quarter: 2013Q4

REPORT INFORMATION
  Report Type: Spontaneous
  Country: US (occurrence: US)
  Receive Date: 20130821
  Receipt Date: 20131021
  Transmission Date: 20140711
  Serious: Yes (Other)
  Sender: FDA-Public Use
  Company Number: US-TEVA-427444USA

PATIENT
  Age: 51 Year
  Sex: Female
  Weight: 73.55 kg

DRUGS (6)
  1. COPAXONE [Suspect]
     Indication: MULTIPLE SCLEROSIS
     Dosage: 20 MILLIGRAM DAILY;
     Route: 058
  2. AMLODIPINE [Concomitant]
     Dosage: 10 MILLIGRAM DAILY;
  3. VITAMIN C [Concomitant]
  4. VITAMIN B12 [Concomitant]
  5. BABY ASPIRIN [Concomitant]
  6. NAMENDA [Concomitant]
     Dosage: 20 MILLIGRAM DAILY;

REACTIONS (17)
  - Cognitive disorder [Unknown]
  - Demyelination [Unknown]
  - Dementia [Unknown]
  - Alopecia [Unknown]
  - Pollakiuria [Unknown]
  - Aphasia [Unknown]
  - Tremor [Unknown]
  - Injection site pain [Unknown]
  - Amnesia [Unknown]
  - Injection site reaction [Unknown]
  - Mental disorder [Unknown]
  - Communication disorder [Unknown]
  - Essential hypertension [Unknown]
  - Aphasia [Unknown]
  - Myoclonus [Unknown]
  - Fatigue [Unknown]
  - Insomnia [Unknown]
